FAERS Safety Report 15440738 (Version 1)
Quarter: 2018Q3

REPORT INFORMATION
  Report Type: Spontaneous
  Country: SG (occurrence: SG)
  Receive Date: 20180928
  Receipt Date: 20180928
  Transmission Date: 20181010
  Serious: Yes (Other)
  Sender: FDA-Public Use
  Company Number: SG-ABBVIE-18S-008-2492587-00

PATIENT
  Sex: Female

DRUGS (2)
  1. LUCRIN DEPOT [Suspect]
     Active Substance: LEUPROLIDE ACETATE
     Indication: NEOPLASM PROPHYLAXIS
     Route: 065
  2. LETROZOLE. [Suspect]
     Active Substance: LETROZOLE
     Indication: NEOPLASM PROPHYLAXIS
     Route: 065

REACTIONS (7)
  - Off label use [Unknown]
  - Poor quality sleep [Unknown]
  - Carpal tunnel syndrome [Unknown]
  - Insomnia [Unknown]
  - Osteoporosis [Unknown]
  - Lipids abnormal [Unknown]
  - Arthritis [Unknown]
